FAERS Safety Report 7530445-2 (Version None)
Quarter: 2011Q2

REPORT INFORMATION
  Report Type: 
  Country: None (occurrence: None)
  Receive Date: 20110607
  Receipt Date: 20110530
  Transmission Date: 20111010
  Serious: Yes (Hospitalization)
  Sender: FDA-Public Use
  Company Number: PHHY2011DK46813

PATIENT
  Sex: Female
  Weight: 70 kg

DRUGS (3)
  1. CARDIZEM [Concomitant]
     Indication: HYPERTENSION
     Dates: start: 20030101, end: 20030101
  2. LIVIAL [Concomitant]
     Indication: HORMONE THERAPY
     Dates: start: 20030101, end: 20030101
  3. NICOTINE [Suspect]
     Indication: SMOKING CESSATION THERAPY
     Dosage: UNK
     Route: 062
     Dates: start: 20110401, end: 20110510

REACTIONS (3)
  - RASH [None]
  - PRURITUS GENERALISED [None]
  - DERMATITIS CONTACT [None]
